FAERS Safety Report 11968817 (Version 5)
Quarter: 2017Q2

REPORT INFORMATION
  Report Type: Spontaneous
  Country: US (occurrence: US)
  Receive Date: 20160128
  Receipt Date: 20170424
  Transmission Date: 20170829
  Serious: Yes (Life-Threatening, Hospitalization, Other)
  Sender: FDA-Public Use
  Company Number: US-009507513-1601USA007375

PATIENT
  Age: 37 Year
  Sex: Male
  Weight: 119.73 kg

DRUGS (7)
  1. PRINIVIL [Suspect]
     Active Substance: LISINOPRIL
     Dosage: 20 MG, QD
     Route: 048
     Dates: start: 19900501, end: 199009
  2. PRINIVIL [Suspect]
     Active Substance: LISINOPRIL
     Dosage: TWO 10 MG, QD
     Route: 048
     Dates: start: 199009, end: 199009
  3. PRINIVIL [Suspect]
     Active Substance: LISINOPRIL
     Indication: BLOOD PRESSURE ABNORMAL
     Dosage: 10 MG, UNK
     Route: 048
     Dates: start: 19890505, end: 19900501
  4. ZYLOPRIM [Concomitant]
     Active Substance: ALLOPURINOL
     Indication: GOUT
     Dosage: 300, UNK
     Route: 065
     Dates: start: 2002
  5. PRINIVIL [Suspect]
     Active Substance: LISINOPRIL
     Dosage: 20 MG, QD
     Route: 048
     Dates: start: 19950513, end: 200402
  6. PRINIVIL [Suspect]
     Active Substance: LISINOPRIL
     Dosage: 10 MG, QD
     Route: 048
     Dates: start: 199009, end: 19900922
  7. PRINIVIL [Suspect]
     Active Substance: LISINOPRIL
     Dosage: 20 MG, QD
     Route: 048
     Dates: start: 19900922, end: 199505

REACTIONS (48)
  - Pancreatitis chronic [Unknown]
  - Upper respiratory tract infection bacterial [Not Recovered/Not Resolved]
  - Diabetes mellitus [Unknown]
  - Prostatitis [Unknown]
  - Malaise [Unknown]
  - Headache [Unknown]
  - Nephrolithiasis [Unknown]
  - Dysuria [Unknown]
  - Prostatomegaly [Unknown]
  - Prostate tenderness [Unknown]
  - Acrochordon [Unknown]
  - Hyperlipidaemia [Unknown]
  - Sinusitis [Unknown]
  - Pain in extremity [Unknown]
  - Pancreatitis chronic [Recovering/Resolving]
  - Back injury [Unknown]
  - Testis discomfort [Unknown]
  - Sleep apnoea syndrome [Not Recovered/Not Resolved]
  - Chronic gastritis [Unknown]
  - Blood pressure inadequately controlled [Recovering/Resolving]
  - Eczema [Unknown]
  - Productive cough [Unknown]
  - Constipation [Unknown]
  - Abdominal pain [Unknown]
  - Fatigue [Unknown]
  - Bradycardia [Unknown]
  - Seborrhoeic dermatitis [Recovering/Resolving]
  - Acute sinusitis [Unknown]
  - Pancreatitis relapsing [Unknown]
  - Pancreatitis relapsing [Unknown]
  - Intentional underdose [Recovered/Resolved]
  - Chest discomfort [Unknown]
  - Lymphadenitis [Recovering/Resolving]
  - Drug dose omission [Recovered/Resolved]
  - Haematuria [Unknown]
  - Temporomandibular joint syndrome [Unknown]
  - Eczema [Unknown]
  - Hypokalaemia [Unknown]
  - Intervertebral disc degeneration [Not Recovered/Not Resolved]
  - Migraine [Unknown]
  - Pancreatitis [Unknown]
  - Renal cyst [Not Recovered/Not Resolved]
  - Sinus disorder [Unknown]
  - Gout [Unknown]
  - Depression [Recovering/Resolving]
  - Diarrhoea [Unknown]
  - Abdominal pain upper [Unknown]
  - Feeling abnormal [Not Recovered/Not Resolved]

NARRATIVE: CASE EVENT DATE: 199004
